FAERS Safety Report 10057526 (Version 1)
Quarter: 2014Q2

REPORT INFORMATION
  Report Type: Spontaneous
  Country: US (occurrence: US)
  Receive Date: 20140404
  Receipt Date: 20140404
  Transmission Date: 20141212
  Serious: No
  Sender: FDA-Public Use
  Company Number: US-009507513-1404USA002078

PATIENT
  Age: 58 Year
  Sex: Male

DRUGS (3)
  1. NASONEX [Suspect]
     Indication: NASAL OEDEMA
     Dosage: 1 SPRAY INTO EACH NOSTRIL TWICE DAILY
     Route: 045
     Dates: start: 20140318
  2. BACLOFEN [Concomitant]
  3. HYDROXYZINE [Concomitant]

REACTIONS (1)
  - Drug ineffective [Unknown]
